FAERS Safety Report 10615453 (Version 1)
Quarter: 2014Q4

REPORT INFORMATION
  Report Type: Spontaneous
  Country: US (occurrence: None)
  Receive Date: 20141125
  Receipt Date: 20141125
  Transmission Date: 20150529
  Serious: Yes (Disabling)
  Sender: FDA-Public Use
  Company Number: None

PATIENT
  Age: 76 Year
  Sex: Female
  Weight: 58.06 kg

DRUGS (1)
  1. MYRBETRIQ [Suspect]
     Active Substance: MIRABEGRON
     Indication: HYPERTONIC BLADDER
     Route: 048
     Dates: start: 20141115, end: 20141120

REACTIONS (6)
  - Feeling abnormal [None]
  - Urinary tract infection [None]
  - Blood pressure increased [None]
  - Chest discomfort [None]
  - Insomnia [None]
  - Urinary retention [None]

NARRATIVE: CASE EVENT DATE: 20141119
